FAERS Safety Report 6161256-0 (Version None)
Quarter: 2009Q2

REPORT INFORMATION
  Report Type: 
  Country: None (occurrence: None)
  Receive Date: 20090417
  Receipt Date: 20090417
  Transmission Date: 20091009
  Serious: Yes (Hospitalization, Disabling)
  Sender: FDA-Public Use
  Company Number: None

PATIENT
  Sex: Male
  Weight: 108.8633 kg

DRUGS (1)
  1. (LEVAQUIN) - ORTHO 500 MG TABLETS [Suspect]
     Indication: LIMB INJURY
     Dosage: 7 TABLETS 1 A DAY
     Dates: start: 20090202

REACTIONS (3)
  - ARTHRALGIA [None]
  - RENAL PAIN [None]
  - TENDONITIS [None]
